FAERS Safety Report 5031593-1 (Version None)
Quarter: 2006Q2

REPORT INFORMATION
  Report Type: 
  Country: None (occurrence: None)
  Receive Date: 20060621
  Receipt Date: 20060616
  Transmission Date: 20061013
  Serious: Yes (Life-Threatening, Hospitalization)
  Sender: FDA-Public Use
  Company Number: GB-GLAXOSMITHKLINE-B0428310A

PATIENT
  Age: 57 Year
  Sex: Female
  Weight: 80 kg

DRUGS (7)
  1. ROSIGLITAZONE [Suspect]
     Dosage: 8MG UNKNOWN
     Route: 048
     Dates: end: 20060515
  2. AMLODIPINE [Concomitant]
     Route: 048
  3. BENDROFLUAZIDE [Concomitant]
     Route: 065
  4. CANDESARTAN [Concomitant]
     Route: 048
  5. GLICLAZIDE [Concomitant]
     Dosage: 2TAB PER DAY
     Route: 048
  6. METFORMIN HCL [Concomitant]
     Dosage: 2TAB PER DAY
     Route: 048
  7. MONTELUKAST [Concomitant]
     Route: 048

REACTIONS (2)
  - ACUTE PULMONARY OEDEMA [None]
  - CARDIAC ARREST [None]
